FAERS Safety Report 9109377 (Version 3)
Quarter: 2014Q3

REPORT INFORMATION
  Report Type: Spontaneous
  Country: US (occurrence: US)
  Receive Date: 20130222
  Receipt Date: 20140707
  Transmission Date: 20150326
  Serious: Yes (Hospitalization, Other)
  Sender: FDA-Public Use
  Company Number: US-UCBSA-078782

PATIENT
  Age: 59 Year
  Sex: Male

DRUGS (2)
  1. CIMZIA [Suspect]
     Active Substance: CERTOLIZUMAB PEGOL
     Indication: CROHN^S DISEASE
     Dosage: 400 MG, EV 4 WEEKS
     Dates: start: 20130111, end: 2013
  2. CIMZIA [Suspect]
     Active Substance: CERTOLIZUMAB PEGOL
     Dosage: UNK
     Dates: start: 2013, end: 20131218

REACTIONS (4)
  - Abdominal abscess [Recovering/Resolving]
  - Fistula [Unknown]
  - Intestinal obstruction [Not Recovered/Not Resolved]
  - Botulism [Not Recovered/Not Resolved]

NARRATIVE: CASE EVENT DATE: 2013
